FAERS Safety Report 6102739-9 (Version None)
Quarter: 2009Q1

REPORT INFORMATION
  Report Type: 
  Country: None (occurrence: None)
  Receive Date: 20090304
  Receipt Date: 20090227
  Transmission Date: 20090719
  Serious: No
  Sender: FDA-Public Use
  Company Number: US-B.I. PHARMACEUTICALS,INC./RIDGEFIELD-2009-BP-01217BP

PATIENT
  Sex: Male

DRUGS (11)
  1. MIRAPEX [Suspect]
     Indication: PARKINSON'S DISEASE
     Dosage: 3MG
     Dates: start: 20080601
  2. JANUVIA [Concomitant]
     Dosage: 100MG
  3. METFORMIN [Concomitant]
     Dosage: 1500MG
  4. ACTOS [Concomitant]
  5. GLYBURIDE [Concomitant]
  6. PLAVIX [Concomitant]
     Dosage: 75MG
  7. ATENOLOL [Concomitant]
     Dosage: 50MG
  8. LEVOTHYROXINE SODIUM [Concomitant]
     Dosage: 3MG
  9. ASPIRIN [Concomitant]
     Dosage: 81MG
  10. VITAMIN D [Concomitant]
  11. FLAX SEED OR GEL CAPS [Concomitant]

REACTIONS (2)
  - HYPERSEXUALITY [None]
  - SOMNOLENCE [None]
